FAERS Safety Report 17323846 (Version 1)
Quarter: 2020Q1

REPORT INFORMATION
  Report Type: Report from Study
  Country: ES (occurrence: ES)
  Receive Date: 20200127
  Receipt Date: 20200127
  Transmission Date: 20200409
  Serious: Yes (Hospitalization)
  Sender: FDA-Public Use
  Company Number: ES-TEVA-2020-ES-1173003

PATIENT
  Age: 82 Year
  Sex: Male

DRUGS (6)
  1. CLOPIDOGREL [Interacting]
     Active Substance: CLOPIDOGREL BISULFATE
     Indication: RETINAL ANEURYSM
     Dosage: 75 MG
     Route: 048
     Dates: start: 20121213, end: 20180224
  2. NAPROXENO (2002A) [Suspect]
     Active Substance: NAPROXEN
     Route: 048
     Dates: start: 20180131, end: 20180224
  3. PREGABALINA (3897A) [Concomitant]
     Active Substance: PREGABALIN
     Dosage: 75 MG
     Route: 048
     Dates: start: 20171127
  4. LORAZEPAM (1864A) [Concomitant]
     Active Substance: LORAZEPAM
     Dosage: 1 MG
     Route: 048
     Dates: start: 20151109
  5. ALOPURINOL (318A) [Concomitant]
     Active Substance: ALLOPURINOL
     Dosage: 100 MG
     Route: 048
     Dates: start: 20160920
  6. EUTIROX 150 MICROGRAMOS COMPRIMIDOS , 100 COMPRIMIDOS [Concomitant]
     Dosage: 450 MCG; 100 TABLETS
     Route: 048
     Dates: start: 20160920

REACTIONS (2)
  - Lower gastrointestinal haemorrhage [Recovered/Resolved]
  - Drug interaction [Unknown]

NARRATIVE: CASE EVENT DATE: 20180224
